FAERS Safety Report 6434998-7 (Version None)
Quarter: 2009Q4

REPORT INFORMATION
  Report Type: 
  Country: None (occurrence: None)
  Receive Date: 20091110
  Receipt Date: 20091027
  Transmission Date: 20100525
  Serious: Yes (Hospitalization, Disabling, Other)
  Sender: FDA-Public Use
  Company Number: PHEH2007US12807

PATIENT
  Sex: Male
  Weight: 80.726 kg

DRUGS (17)
  1. AREDIA [Suspect]
     Indication: MULTIPLE MYELOMA
     Dosage: MONTHLY
  2. AREDIA [Suspect]
     Dosage: MONTHLY
  3. ZOMETA [Suspect]
     Indication: MULTIPLE MYELOMA
     Dosage: UNK
     Dates: end: 20030101
  4. CHLORHEXIDINE GLUCONATE [Concomitant]
     Dosage: 0.12% BID
  5. VITAMIN D [Concomitant]
     Dosage: UNK
     Dates: start: 20080101
  6. PREDNISONE [Concomitant]
  7. THALIDOMIDE [Concomitant]
     Dosage: 100 MG/DAY
     Dates: start: 20030201
  8. MELPHALAN [Concomitant]
     Dosage: UNK
     Dates: start: 20030101
  9. ACYCLOVIR SODIUM [Concomitant]
  10. VANCOMYCIN [Concomitant]
     Dosage: UNK
     Dates: start: 20030801
  11. CEFEPIME [Concomitant]
     Dosage: UNK
     Dates: start: 20030801
  12. SEPTRA DS [Concomitant]
     Dosage: 1 TABLET BID EVERY SAT AND SUN
     Route: 048
  13. PROTONIX [Concomitant]
     Dosage: 40 MG QD
     Dates: start: 20030101
  14. K-DUR [Concomitant]
     Dosage: 20 MEQ QD
     Dates: start: 20030101
  15. DEXAMETHASONE [Concomitant]
     Dosage: UNK
     Dates: start: 20030201
  16. HERBAL PREPARATION [Concomitant]
  17. PEN-VEE K [Concomitant]
     Dosage: 500 MG , QD
     Route: 048

REACTIONS (44)
  - ANHEDONIA [None]
  - ANXIETY [None]
  - ARTHRALGIA [None]
  - AUTOLOGOUS BONE MARROW TRANSPLANTATION THERAPY [None]
  - BACK PAIN [None]
  - BIOPSY BONE MARROW ABNORMAL [None]
  - BLOOD PRESSURE INCREASED [None]
  - BONE PAIN [None]
  - CATHETERISATION VENOUS [None]
  - COUGH [None]
  - CYTOREDUCTIVE SURGERY [None]
  - DEAFNESS [None]
  - DEFORMITY [None]
  - DERMATOPHYTOSIS [None]
  - DIABETES MELLITUS [None]
  - DISCOMFORT [None]
  - DISEASE RECURRENCE [None]
  - DRUG TOXICITY [None]
  - DYSPNOEA EXERTIONAL [None]
  - EMOTIONAL DISTRESS [None]
  - FATIGUE [None]
  - GINGIVAL SWELLING [None]
  - HEADACHE [None]
  - HYPOPHAGIA [None]
  - INFECTION [None]
  - INJURY [None]
  - INTERVERTEBRAL DISC PROTRUSION [None]
  - LEUKOPENIA [None]
  - LYMPHADENECTOMY [None]
  - MULTIPLE MYELOMA [None]
  - MUSCULOSKELETAL PAIN [None]
  - ORAL DISORDER [None]
  - OSTEOARTHRITIS [None]
  - OSTEONECROSIS [None]
  - PAIN [None]
  - PAIN IN JAW [None]
  - PLASMACYTOMA [None]
  - RIB FRACTURE [None]
  - SHOULDER OPERATION [None]
  - SINUSITIS [None]
  - SOFT TISSUE INFLAMMATION [None]
  - SPINAL DISORDER [None]
  - STEM CELL TRANSPLANT [None]
  - TOOTH EXTRACTION [None]
